FAERS Safety Report 17301122 (Version 3)
Quarter: 2020Q1

REPORT INFORMATION
  Report Type: Spontaneous
  Country: US (occurrence: US)
  Receive Date: 20200122
  Receipt Date: 20200131
  Transmission Date: 20200409
  Serious: No
  Sender: FDA-Public Use
  Company Number: US-PFIZER INC-2020011017

PATIENT
  Age: 57 Year
  Sex: Female
  Weight: 86.18 kg

DRUGS (5)
  1. LYRICA [Suspect]
     Active Substance: PREGABALIN
     Indication: MONONEUROPATHY MULTIPLEX
     Dosage: 150 MG, 3X/DAY
     Route: 048
     Dates: start: 201812, end: 20200103
  2. LYRICA [Suspect]
     Active Substance: PREGABALIN
     Indication: BURNING SENSATION
  3. LYRICA [Suspect]
     Active Substance: PREGABALIN
     Indication: NEUROPATHY PERIPHERAL
  4. AMITRIPTYLINE [Concomitant]
     Active Substance: AMITRIPTYLINE
     Dosage: UNK
     Dates: start: 201812
  5. DULOXETINE. [Concomitant]
     Active Substance: DULOXETINE
     Indication: NERVE INJURY
     Dosage: 30 MG, UNK, (AT NIGHT)
     Route: 048
     Dates: start: 201912

REACTIONS (4)
  - Peripheral coldness [Unknown]
  - Peripheral swelling [Unknown]
  - Joint swelling [Unknown]
  - Musculoskeletal stiffness [Unknown]

NARRATIVE: CASE EVENT DATE: 20200103
